FAERS Safety Report 11973482 (Version 2)
Quarter: 2016Q1

REPORT INFORMATION
  Report Type: Report from Study
  Country: US (occurrence: US)
  Receive Date: 20160128
  Receipt Date: 20160203
  Transmission Date: 20160526
  Serious: No
  Sender: FDA-Public Use
  Company Number: US-ABBVIE-15K-163-1399926-00

PATIENT
  Age: 34 Year
  Sex: Female

DRUGS (1)
  1. HUMIRA [Suspect]
     Active Substance: ADALIMUMAB
     Indication: RHEUMATOID ARTHRITIS
     Route: 065
     Dates: start: 20150324

REACTIONS (9)
  - Rheumatoid arthritis [Unknown]
  - Joint swelling [Unknown]
  - Muscular weakness [Unknown]
  - Skin disorder [Unknown]
  - Dry skin [Recovering/Resolving]
  - Musculoskeletal pain [Recovering/Resolving]
  - Injection site pain [Recovered/Resolved]
  - Pain [Unknown]
  - Fatigue [Recovered/Resolved]

NARRATIVE: CASE EVENT DATE: 2015
